FAERS Safety Report 23755832 (Version 1)
Quarter: 2024Q2

REPORT INFORMATION
  Report Type: Spontaneous
  Country: US (occurrence: US)
  Receive Date: 20240418
  Receipt Date: 20240418
  Transmission Date: 20240716
  Serious: Yes (Other)
  Sender: FDA-Public Use
  Company Number: US-ARBOR PHARMACEUTICALS, LLC-US-2023ARB004913

PATIENT
  Sex: Male

DRUGS (4)
  1. HORIZANT [Suspect]
     Active Substance: GABAPENTIN ENACARBIL
     Indication: Restless legs syndrome
     Dosage: 1 DF, QD IN LATE AFTERNOON
     Route: 048
     Dates: start: 20230829, end: 20231113
  2. HORIZANT [Suspect]
     Active Substance: GABAPENTIN ENACARBIL
     Dosage: 1 DF, QD
     Route: 048
     Dates: start: 202311
  3. ESCITALOPRAM [Concomitant]
     Active Substance: ESCITALOPRAM OXALATE
     Indication: Product used for unknown indication
     Dosage: 20 MG, QD
  4. PRAMIPEXOLE [Concomitant]
     Active Substance: PRAMIPEXOLE\PRAMIPEXOLE DIHYDROCHLORIDE
     Indication: Product used for unknown indication
     Dosage: 0.75 MG, BID

REACTIONS (17)
  - Suicidal ideation [Unknown]
  - Oedema [Not Recovered/Not Resolved]
  - Abdominal distension [Not Recovered/Not Resolved]
  - Discomfort [Not Recovered/Not Resolved]
  - Brain fog [Unknown]
  - Withdrawal syndrome [Unknown]
  - Pain [Unknown]
  - Restless legs syndrome [Unknown]
  - Apathy [Unknown]
  - Thought blocking [Unknown]
  - Emotional poverty [Unknown]
  - Anhedonia [Unknown]
  - Asthenia [Unknown]
  - Insomnia [Unknown]
  - Weight increased [Not Recovered/Not Resolved]
  - Product dose omission issue [Unknown]
  - Incorrect dose administered [Unknown]

NARRATIVE: CASE EVENT DATE: 20230101
